FAERS Safety Report 6897747-4 (Version None)
Quarter: 2010Q3

REPORT INFORMATION
  Report Type: 
  Country: None (occurrence: None)
  Receive Date: 20100802
  Receipt Date: 20070718
  Transmission Date: 20110219
  Serious: No
  Sender: FDA-Public Use
  Company Number: US-PFIZER INC-2007060868

PATIENT
  Sex: Male
  Weight: 70.7 kg

DRUGS (11)
  1. LYRICA [Suspect]
     Indication: POST HERPETIC NEURALGIA
     Dates: start: 20070628
  2. VERAPAMIL [Concomitant]
  3. TERAZOSIN HCL [Concomitant]
  4. GABAPENTIN [Concomitant]
  5. LEVOTHROID [Concomitant]
  6. LORAZEPAM [Concomitant]
  7. NORTRIPTYLINE [Concomitant]
  8. OMEPRAZOLE [Concomitant]
  9. FOSAMAX [Concomitant]
  10. NIZORAL [Concomitant]
  11. LEVITRA [Concomitant]

REACTIONS (1)
  - BLOOD ALKALINE PHOSPHATASE INCREASED [None]
